FAERS Safety Report 25681962 (Version 1)
Quarter: 2025Q3

REPORT INFORMATION
  Report Type: Spontaneous
  Country: EU (occurrence: EU)
  Receive Date: 20250814
  Receipt Date: 20250814
  Transmission Date: 20251020
  Serious: Yes (Hospitalization, Other)
  Sender: SANOFI AVENTIS
  Company Number: None

PATIENT
  Age: 48 Year
  Sex: Female
  Weight: 73 kg

DRUGS (3)
  1. DUPIXENT [Suspect]
     Active Substance: DUPILUMAB
     Indication: Product used for unknown indication
     Route: 058
     Dates: start: 202406
  2. OZEMPIC [Suspect]
     Active Substance: SEMAGLUTIDE
     Indication: Product used for unknown indication
     Route: 058
     Dates: start: 202502
  3. CENOBAMATE [Suspect]
     Active Substance: CENOBAMATE
     Indication: Epilepsy
     Dosage: 2 DF, QD
     Route: 048
     Dates: start: 202501

REACTIONS (1)
  - Mixed liver injury [Not Recovered/Not Resolved]

NARRATIVE: CASE EVENT DATE: 20250709
